FAERS Safety Report 6644969-3 (Version None)
Quarter: 2010Q1

REPORT INFORMATION
  Report Type: 
  Country: None (occurrence: None)
  Receive Date: 20100322
  Receipt Date: 20100310
  Transmission Date: 20100710
  Serious: Yes (Other)
  Sender: FDA-Public Use
  Company Number: PHHY2010DE15282

PATIENT
  Weight: 105 kg

DRUGS (8)
  1. EXFORGE [Suspect]
     Indication: HYPERTENSION
     Dosage: 160/5 MG PER DAY
     Route: 048
     Dates: start: 20090515
  2. EXFORGE [Suspect]
     Dosage: 160/10 MG PER DAY
     Route: 048
  3. DIGIMERCK [Concomitant]
     Dosage: 0.1 MG PER DAY
  4. RAMIPRIL [Concomitant]
     Dosage: 10 MG PER DAY
  5. FUROSEMID [Concomitant]
     Dosage: 80 MG PER DAY
  6. NITRENDIPINE [Concomitant]
  7. BISOPROLOL [Concomitant]
  8. SPIRONOLACTONE [Concomitant]

REACTIONS (3)
  - MITRAL VALVE INCOMPETENCE [None]
  - PULMONARY HYPERTENSION [None]
  - TRICUSPID VALVE INCOMPETENCE [None]
